FAERS Safety Report 19742777 (Version 1)
Quarter: 2021Q3

REPORT INFORMATION
  Report Type: Spontaneous
  Country: US (occurrence: US)
  Receive Date: 20210823
  Receipt Date: 20210823
  Transmission Date: 20211014
  Serious: Yes (Other)
  Sender: FDA-Public Use
  Company Number: None

PATIENT
  Age: 71 Year
  Sex: Female

DRUGS (12)
  1. MECLIZINE 25MG [Concomitant]
  2. CEPHALEXIN 500MG [Concomitant]
     Active Substance: CEPHALEXIN
  3. ISOSORBIDE MONONITRATE. [Concomitant]
     Active Substance: ISOSORBIDE MONONITRATE
  4. MESALAMINE 400MG [Concomitant]
  5. NITROGLYCERIN 0.4MG [Concomitant]
  6. UBRELVY [Suspect]
     Active Substance: UBROGEPANT
     Indication: MIGRAINE
     Route: 048
  7. PRALUENT [Concomitant]
     Active Substance: ALIROCUMAB
  8. VITAMIN D3 [Concomitant]
     Active Substance: CHOLECALCIFEROL
  9. SUMATRIPTAN. [Concomitant]
     Active Substance: SUMATRIPTAN
  10. CLONAZEPAM. [Concomitant]
     Active Substance: CLONAZEPAM
  11. HYROCODONE/ACETAMINOPHEN [Concomitant]
  12. BREO ELLIPTA [Concomitant]
     Active Substance: FLUTICASONE FUROATE\VILANTEROL TRIFENATATE

REACTIONS (3)
  - Nausea [None]
  - Drug ineffective [None]
  - Dysphagia [None]

NARRATIVE: CASE EVENT DATE: 20210820
